FAERS Safety Report 18031140 (Version 7)
Quarter: 2022Q1

REPORT INFORMATION
  Report Type: Spontaneous
  Country: JP (occurrence: JP)
  Receive Date: 20200715
  Receipt Date: 20220104
  Transmission Date: 20220423
  Serious: Yes (Hospitalization, Disabling, Other)
  Sender: FDA-Public Use
  Company Number: JP-BRISTOL-MYERS SQUIBB COMPANY-BMS-2020-056616

PATIENT
  Age: 72 Year
  Sex: Female
  Weight: 50 kg

DRUGS (11)
  1. OPDIVO [Suspect]
     Active Substance: NIVOLUMAB
     Indication: Metastatic renal cell carcinoma
     Dosage: 240 MILLIGRAM
     Route: 041
     Dates: start: 20200204, end: 20200623
  2. GLYCOPYRROLATE\INDACATEROL MALEATE [Concomitant]
     Active Substance: GLYCOPYRROLATE\INDACATEROL MALEATE
     Indication: Product used for unknown indication
     Dosage: UNK, EVERYDAY
     Route: 055
  3. BIO-THREE [Concomitant]
     Active Substance: HERBALS
     Indication: Product used for unknown indication
     Dosage: UNK, Q4H
     Route: 048
  4. ICOSAPENT ETHYL [Concomitant]
     Active Substance: ICOSAPENT ETHYL
     Indication: Product used for unknown indication
     Dosage: 300 MILLIGRAM, Q8H
     Route: 048
  5. CINAL [ASCORBIC ACID;CALCIUM PANTOTHENATE] [Concomitant]
     Indication: Product used for unknown indication
     Dosage: 1 GRAM
     Route: 048
  6. FAMOTIDINE [Concomitant]
     Active Substance: FAMOTIDINE
     Indication: Product used for unknown indication
     Dosage: 20 MILLIGRAM, QD
     Route: 048
  7. XYZAL [Concomitant]
     Active Substance: LEVOCETIRIZINE DIHYDROCHLORIDE
     Indication: Product used for unknown indication
     Dosage: 5 MILLIGRAM, QD
     Route: 048
  8. MIYA-BM [Concomitant]
     Active Substance: CLOSTRIDIUM BUTYRICUM SPORES STRAIN M-55
     Indication: Product used for unknown indication
     Dosage: UNK, Q8H
     Route: 048
  9. ALOSENN [SENNOSIDE A+B] [Concomitant]
     Indication: Product used for unknown indication
     Dosage: 0.5 GRAM, QD
     Route: 048
  10. TIMEPIDIUM BROMIDE [Concomitant]
     Active Substance: TIMEPIDIUM BROMIDE
     Indication: Product used for unknown indication
     Dosage: 30 MILLIGRAM, Q8H
     Route: 048
  11. BETAMETHASONE DIPROPIONATE [Concomitant]
     Active Substance: BETAMETHASONE DIPROPIONATE
     Indication: Product used for unknown indication
     Dosage: UNK
     Route: 062

REACTIONS (5)
  - Autoimmune pancreatitis [Recovered/Resolved with Sequelae]
  - Cholangitis sclerosing [Unknown]
  - Barrett^s oesophagus [Unknown]
  - Chronic gastritis [Unknown]
  - Duodenitis [Unknown]

NARRATIVE: CASE EVENT DATE: 20200623
